FAERS Safety Report 5401060-1 (Version None)
Quarter: 2007Q3

REPORT INFORMATION
  Report Type: 
  Country: None (occurrence: None)
  Receive Date: 20070731
  Receipt Date: 20070720
  Transmission Date: 20080115
  Serious: Yes (Death)
  Sender: FDA-Public Use
  Company Number: CN-BRACCO-BRO-011707

PATIENT
  Age: 53 Year
  Sex: Female

DRUGS (2)
  1. IOPAMIRO [Suspect]
     Route: 042
     Dates: start: 20070511, end: 20070511
  2. IOPAMIRO [Suspect]
     Route: 042
     Dates: start: 20070511, end: 20070511

REACTIONS (1)
  - HYPERSENSITIVITY [None]
